FAERS Safety Report 25477199 (Version 1)
Quarter: 2025Q2

REPORT INFORMATION
  Report Type: Spontaneous
  Country: US (occurrence: US)
  Receive Date: 20250625
  Receipt Date: 20250625
  Transmission Date: 20250717
  Serious: No
  Sender: ALKEM
  Company Number: US-ALKEM LABORATORIES LIMITED-US-ALKEM-2024-17042

PATIENT
  Age: 40 Year
  Sex: Female

DRUGS (6)
  1. CINACALCET [Suspect]
     Active Substance: CINACALCET
     Indication: Hyperparathyroidism primary
     Dosage: 15 MILLIGRAM, QD
     Route: 065
  2. CINACALCET [Suspect]
     Active Substance: CINACALCET
     Indication: Hypercalcaemia
  3. CINACALCET [Suspect]
     Active Substance: CINACALCET
     Indication: Pancreatitis
  4. CALCITONIN [Suspect]
     Active Substance: CALCITONIN
     Indication: Hypercalcaemia
     Route: 065
  5. CALCITONIN [Suspect]
     Active Substance: CALCITONIN
     Indication: Pancreatitis
  6. CALCITONIN [Suspect]
     Active Substance: CALCITONIN
     Indication: Hyperparathyroidism primary

REACTIONS (2)
  - Exposure during pregnancy [Unknown]
  - Treatment failure [Unknown]
